FAERS Safety Report 12741319 (Version 1)
Quarter: 2016Q3

REPORT INFORMATION
  Report Type: Report from Study
  Country: US (occurrence: US)
  Receive Date: 20160914
  Receipt Date: 20160914
  Transmission Date: 20161109
  Serious: Yes (Hospitalization, Other)
  Sender: FDA-Public Use
  Company Number: US-ROCHE-1665949

PATIENT
  Age: 72 Year
  Sex: Male
  Weight: 65.1 kg

DRUGS (4)
  1. DOCETAXEL. [Suspect]
     Active Substance: DOCETAXEL
     Indication: PROSTATE CANCER
     Dosage: OVER 60 MINUTES ON DAY 1
     Route: 042
     Dates: start: 20100125
  2. BEVACIZUMAB [Suspect]
     Active Substance: BEVACIZUMAB
     Indication: PROSTATE CANCER
     Dosage: OVER 30-90 MINUTES ON DAY 1.
     Route: 042
     Dates: start: 20100125
  3. PREDNISONE. [Suspect]
     Active Substance: PREDNISONE
     Indication: PROSTATE CANCER
     Route: 048
     Dates: start: 20100125
  4. LENALIDOMIDE [Suspect]
     Active Substance: LENALIDOMIDE
     Indication: PROSTATE CANCER
     Route: 048
     Dates: start: 20100125

REACTIONS (4)
  - Neutrophil count decreased [Unknown]
  - Dehydration [Recovered/Resolved]
  - Anaemia [Unknown]
  - Febrile neutropenia [Unknown]

NARRATIVE: CASE EVENT DATE: 20100202
